FAERS Safety Report 5066908-1 (Version None)
Quarter: 2006Q3

REPORT INFORMATION
  Report Type: 
  Country: None (occurrence: None)
  Receive Date: 20060726
  Receipt Date: 20060711
  Transmission Date: 20061208
  Serious: Yes (Hospitalization)
  Sender: FDA-Public Use
  Company Number: 2006S1006507

PATIENT
  Age: 47 Year
  Sex: Male

DRUGS (2)
  1. NAPROXEN [Suspect]
     Dosage: 500 MG; PO
     Route: 048
  2. PRINIVIL [Concomitant]

REACTIONS (4)
  - ABDOMINAL HERNIA [None]
  - ABDOMINAL WALL ABSCESS [None]
  - ENTEROCUTANEOUS FISTULA [None]
  - MUSCLE HAEMORRHAGE [None]
